FAERS Safety Report 8366395-1 (Version None)
Quarter: 2012Q2

REPORT INFORMATION
  Report Type: 
  Country: None (occurrence: None)
  Receive Date: 20120517
  Receipt Date: 20120515
  Transmission Date: 20120825
  Serious: Yes (Other)
  Sender: FDA-Public Use
  Company Number: US-PFIZER INC-2012118516

PATIENT
  Sex: Female
  Weight: 95.238 kg

DRUGS (17)
  1. TOPAMAX [Suspect]
     Indication: CONVULSION
     Dosage: 200 MG, 2X/DAY
     Dates: start: 20060101
  2. PROTONIX [Concomitant]
     Indication: GASTROOESOPHAGEAL REFLUX DISEASE
     Dosage: 40 MG, DAILY
  3. TRAMADOL [Concomitant]
     Indication: PAIN
     Dosage: 50 MG, 3X/DAY
  4. LIPITOR [Suspect]
     Indication: BLOOD CHOLESTEROL INCREASED
     Dosage: 40 MG, DAILY
     Route: 048
     Dates: start: 20050101
  5. CELEBREX [Suspect]
     Indication: ARTHRITIS
     Dosage: 200 MG, DAILY
     Route: 048
     Dates: start: 20080101
  6. ATIVAN [Concomitant]
     Indication: ANXIETY
     Dosage: 0.5 MG, 3X/DAY
     Route: 048
  7. WELLBUTRIN [Concomitant]
     Indication: DEPRESSION
     Dosage: 300 MG, DAILY
  8. NEURONTIN [Suspect]
     Indication: PAIN
     Dosage: 400 MG, 2X/DAY
     Dates: start: 20070101
  9. ATIVAN [Concomitant]
     Indication: PANIC ATTACK
  10. COGENTIN [Concomitant]
     Indication: PANIC ATTACK
     Dosage: 1 MG, 3X/DAY
  11. LITHIUM [Concomitant]
     Indication: BIPOLAR DISORDER
     Dosage: 300 MG, 2X/DAY
  12. GEODON [Concomitant]
     Indication: MOOD ALTERED
     Dosage: 80 MG, DAILY
     Dates: start: 20090101
  13. NORVASC [Suspect]
     Indication: HYPERTENSION
     Dosage: 10 MG, DAILY
     Route: 048
     Dates: start: 19950101
  14. WELLBUTRIN [Concomitant]
     Indication: BIPOLAR DISORDER
  15. REQUIP [Concomitant]
     Indication: MUSCLE SPASMS
     Dosage: 1 MG, DAILY
     Route: 048
  16. GEODON [Concomitant]
     Indication: BIPOLAR DISORDER
  17. TOPAMAX [Suspect]
     Indication: MIGRAINE

REACTIONS (3)
  - DEPRESSED LEVEL OF CONSCIOUSNESS [None]
  - SUICIDE ATTEMPT [None]
  - TREMOR [None]
